FAERS Safety Report 7584492-5 (Version None)
Quarter: 2011Q2

REPORT INFORMATION
  Report Type: 
  Country: None (occurrence: None)
  Receive Date: 20110630
  Receipt Date: 20110623
  Transmission Date: 20111010
  Serious: Yes (Hospitalization)
  Sender: FDA-Public Use
  Company Number: US-B.I. PHARMACEUTICALS,INC./RIDGEFIELD-2011-BP-10701BP

PATIENT
  Sex: Female

DRUGS (14)
  1. ATROVENT [Concomitant]
     Indication: ASTHMA
     Route: 055
  2. DIGOXIN [Concomitant]
     Indication: ATRIAL FIBRILLATION
     Dosage: 0.25 MG
     Route: 048
  3. LASIX [Concomitant]
     Indication: ATRIAL FIBRILLATION
     Dosage: 40 MG
     Route: 048
  4. DILTIAZEM [Concomitant]
     Indication: ATRIAL FIBRILLATION
     Dosage: 360 MG
     Route: 048
  5. PRADAXA [Suspect]
     Indication: ATRIAL FIBRILLATION
     Dosage: 300 MG
     Route: 048
     Dates: start: 20110308
  6. XOPENEX [Concomitant]
     Indication: ASTHMA
     Route: 055
  7. OMEPRAZOLE [Concomitant]
     Indication: ABDOMINAL DISCOMFORT
     Dosage: 20 MG
     Route: 048
  8. FOSAMAX [Concomitant]
     Route: 048
  9. MVIS [Concomitant]
     Indication: PROPHYLAXIS
     Route: 048
  10. BUDESONIDE [Concomitant]
     Indication: ASTHMA
     Route: 055
  11. POTASSIUM CHLORIDE [Concomitant]
     Indication: PROPHYLAXIS
     Dosage: 10 MEQ
     Route: 048
  12. LIPITOR [Concomitant]
     Indication: BLOOD CHOLESTEROL INCREASED
     Dosage: 40 MG
     Route: 048
  13. SYNTHROID [Concomitant]
     Indication: HYPOTHYROIDISM
     Dosage: 150 MG
     Route: 048
  14. SPIRONOLACTONE [Concomitant]
     Indication: ATRIAL FIBRILLATION
     Dosage: 50 MG
     Route: 048

REACTIONS (5)
  - DECREASED APPETITE [None]
  - NAUSEA [None]
  - BRONCHITIS [None]
  - VOMITING [None]
  - ERUCTATION [None]
